FAERS Safety Report 25906211 (Version 1)
Quarter: 2025Q4

REPORT INFORMATION
  Report Type: Spontaneous
  Country: US (occurrence: None)
  Receive Date: 20251009
  Receipt Date: 20251009
  Transmission Date: 20260117
  Serious: Yes (Disabling)
  Sender: FDA-CTU
  Company Number: None

PATIENT
  Age: 9 Year
  Sex: Male

DRUGS (1)
  1. OSELTAMIVIR [Suspect]
     Active Substance: OSELTAMIVIR
     Indication: Influenza
     Dates: start: 20190202, end: 20190202

REACTIONS (9)
  - Dyskinesia [None]
  - Dystonia [None]
  - Excessive eye blinking [None]
  - Unresponsive to stimuli [None]
  - Paediatric acute-onset neuropsychiatric syndrome [None]
  - General physical health deterioration [None]
  - Loss of personal independence in daily activities [None]
  - Educational problem [None]
  - Illiteracy [None]

NARRATIVE: CASE EVENT DATE: 20190202
